FAERS Safety Report 5046502-9 (Version None)
Quarter: 2006Q2

REPORT INFORMATION
  Report Type: 
  Country: None (occurrence: None)
  Receive Date: 20060629
  Receipt Date: 20060616
  Transmission Date: 20061013
  Serious: Yes (Hospitalization, Other)
  Sender: FDA-Public Use
  Company Number: 2006077829

PATIENT
  Age: 47 Year
  Sex: Male

DRUGS (11)
  1. CELEBREX [Suspect]
     Indication: ARTHRITIS
     Dates: start: 19990101
  2. BEXTRA [Suspect]
     Indication: ARTHRITIS
     Dates: end: 20040101
  3. MORPHINE SULFATE [Concomitant]
  4. OXYCONTIN [Concomitant]
  5. CARISOPRODOL [Concomitant]
  6. PREVACID [Concomitant]
  7. HYDROCODONE BITARTRATE [Concomitant]
  8. DIAZEPAM [Concomitant]
  9. AMBIEN [Concomitant]
  10. LIPITOR [Concomitant]
  11. ZOLOFT [Concomitant]

REACTIONS (26)
  - ASTHENIA [None]
  - BLOOD VISCOSITY INCREASED [None]
  - CARDIAC VALVE DISEASE [None]
  - CEREBROVASCULAR ACCIDENT [None]
  - DEEP VEIN THROMBOSIS [None]
  - DRUG INEFFECTIVE [None]
  - DRUG TOLERANCE [None]
  - DYSSTASIA [None]
  - HOUSE DUST ALLERGY [None]
  - INTERVERTEBRAL DISC DEGENERATION [None]
  - INTERVERTEBRAL DISC PROTRUSION [None]
  - KIDNEY INFECTION [None]
  - LOSS OF CONSCIOUSNESS [None]
  - MEMORY IMPAIRMENT [None]
  - MYOCARDIAL INFARCTION [None]
  - NASOPHARYNGITIS [None]
  - OSTEOMYELITIS [None]
  - PRURITUS [None]
  - PULMONARY THROMBOSIS [None]
  - RASH [None]
  - SENSATION OF HEAVINESS [None]
  - TENDERNESS [None]
  - THROMBOSIS [None]
  - TRANSIENT ISCHAEMIC ATTACK [None]
  - URTICARIA [None]
  - VOMITING [None]
